FAERS Safety Report 6278961-8 (Version None)
Quarter: 2009Q3

REPORT INFORMATION
  Report Type: 
  Country: None (occurrence: None)
  Receive Date: 20090723
  Receipt Date: 20090717
  Transmission Date: 20100115
  Serious: Yes (Other)
  Sender: FDA-Public Use
  Company Number: US-ELI_LILLY_AND_COMPANY-US200907003732

PATIENT
  Sex: Male

DRUGS (2)
  1. HUMULIN N [Suspect]
     Indication: DIABETES MELLITUS
     Dosage: 10 U, DAILY (1/D)
  2. LUMIGAN [Concomitant]
     Indication: GLAUCOMA

REACTIONS (4)
  - CATARACT [None]
  - EYE HAEMORRHAGE [None]
  - INTENTIONAL DRUG MISUSE [None]
  - VISUAL ACUITY REDUCED [None]
